FAERS Safety Report 5241262-0 (Version None)
Quarter: 2007Q1

REPORT INFORMATION
  Report Type: 
  Country: None (occurrence: None)
  Receive Date: 20070215
  Receipt Date: 20070215
  Transmission Date: 20070707
  Serious: Yes (Hospitalization)
  Sender: FDA-Public Use
  Company Number: None

PATIENT
  Age: 88 Year
  Sex: Male

DRUGS (7)
  1. FOSINOPRIL SODIUM [Suspect]
     Indication: HYPERTENSION
     Dosage: 20 MG QD
     Dates: start: 20040101
  2. INDAPAMIDE [Suspect]
     Indication: HYPERTENSION
     Dosage: 2.5MG QD
     Dates: start: 20030201
  3. MOXIFLOXACIN HCL [Concomitant]
  4. ZOCOR [Concomitant]
  5. LORATADINE [Concomitant]
  6. DSS [Concomitant]
  7. LACTULOSE [Concomitant]

REACTIONS (1)
  - RENAL FAILURE ACUTE [None]
